FAERS Safety Report 4914313-8 (Version None)
Quarter: 2006Q1

REPORT INFORMATION
  Report Type: 
  Country: None (occurrence: None)
  Receive Date: 20060113
  Receipt Date: 20051101
  Transmission Date: 20060701
  Serious: Yes (Other)
  Sender: FDA-Public Use
  Company Number: 2005SP003831

PATIENT
  Age: 89 Year
  Sex: Male

DRUGS (3)
  1. LUNESTA [Suspect]
     Indication: INSOMNIA
     Dosage: 30 MG;1X;ORAL    2 MG;HS;ORAL
     Route: 048
     Dates: start: 20050901, end: 20051001
  2. LUNESTA [Suspect]
     Indication: INSOMNIA
     Dosage: 30 MG;1X;ORAL    2 MG;HS;ORAL
     Route: 048
     Dates: start: 20051001, end: 20051001
  3. PHENYTOIN [Concomitant]

REACTIONS (1)
  - SUICIDE ATTEMPT [None]
